FAERS Safety Report 11353410 (Version 1)
Quarter: 2015Q3

REPORT INFORMATION
  Report Type: Spontaneous
  Country: US (occurrence: US)
  Receive Date: 20150807
  Receipt Date: 20150807
  Transmission Date: 20151125
  Serious: No
  Sender: FDA-Public Use
  Company Number: US-JNJFOC-20150322483

PATIENT
  Sex: Female

DRUGS (3)
  1. OTHER THERAPEUTIC MEDICATIONS [Concomitant]
     Active Substance: UNSPECIFIED INGREDIENT
     Indication: HYPERTENSION
     Route: 065
  2. WOMENS ROGAINE [Suspect]
     Active Substance: MINOXIDIL
     Route: 061
  3. WOMENS ROGAINE [Suspect]
     Active Substance: MINOXIDIL
     Indication: ALOPECIA
     Dosage: DOSE: MORE THAN THE SUGGESTED DOSAGE
     Route: 061

REACTIONS (2)
  - Heart rate increased [Recovered/Resolved]
  - Incorrect dose administered [Unknown]
